FAERS Safety Report 13125435 (Version 1)
Quarter: 2017Q1

REPORT INFORMATION
  Report Type: Spontaneous
  Country: US (occurrence: US)
  Receive Date: 20170117
  Receipt Date: 20170117
  Transmission Date: 20170428
  Serious: Yes (Death)
  Sender: FDA-Public Use
  Company Number: None

PATIENT
  Age: 64 Year
  Sex: Male

DRUGS (13)
  1. D-3-5 [Concomitant]
  2. TACROLIMUS. [Suspect]
     Active Substance: TACROLIMUS
     Indication: HYPERPARATHYROIDISM
     Route: 048
     Dates: start: 20160108
  3. ASPIRIN. [Concomitant]
     Active Substance: ASPIRIN
  4. THERAGRAN-M FISH OIL [Concomitant]
  5. LEVOTHYROXINE SODIUM. [Concomitant]
     Active Substance: LEVOTHYROXINE SODIUM
  6. LANTUS [Concomitant]
     Active Substance: INSULIN GLARGINE
  7. SENNA-DOCUSATE SODIUM [Concomitant]
  8. METOPROLOL TARTRAE [Concomitant]
  9. SIMVASTATIN. [Concomitant]
     Active Substance: SIMVASTATIN
  10. NOVOLOG [Concomitant]
     Active Substance: INSULIN ASPART
  11. LISINOPRIL. [Concomitant]
     Active Substance: LISINOPRIL
  12. FLUCONAZOLE. [Concomitant]
     Active Substance: FLUCONAZOLE
  13. FAMOTIDINE. [Concomitant]
     Active Substance: FAMOTIDINE

REACTIONS (1)
  - Unevaluable event [None]
